FAERS Safety Report 16007261 (Version 3)
Quarter: 2019Q3

REPORT INFORMATION
  Report Type: Spontaneous
  Country: GB (occurrence: GB)
  Receive Date: 20190226
  Receipt Date: 20190819
  Transmission Date: 20191004
  Serious: Yes (Death, Life-Threatening, Hospitalization, Other)
  Sender: FDA-Public Use
  Company Number: GB-BRISTOL-MYERS SQUIBB COMPANY-BMS-2019-017008

PATIENT
  Age: 86 Year
  Sex: Female

DRUGS (1)
  1. WARFARIN SODIUM. [Suspect]
     Active Substance: WARFARIN SODIUM
     Indication: PULMONARY OEDEMA
     Route: 065

REACTIONS (5)
  - Obstructive airways disorder [Unknown]
  - Respiratory failure [Fatal]
  - Tongue haematoma [Unknown]
  - Ecchymosis [Unknown]
  - Oesophageal haemorrhage [Recovered/Resolved]
